FAERS Safety Report 6587910-4 (Version None)
Quarter: 2010Q1

REPORT INFORMATION
  Report Type: 
  Country: None (occurrence: None)
  Receive Date: 20100218
  Receipt Date: 20100209
  Transmission Date: 20100710
  Serious: Yes (Other)
  Sender: FDA-Public Use
  Company Number: DE-GENZYME-CERZ-1001163

PATIENT

DRUGS (1)
  1. CEREZYME [Suspect]
     Indication: GAUCHER'S DISEASE
     Dosage: 120 U, UNK
     Route: 042

REACTIONS (3)
  - EXOSTOSIS [None]
  - OSTEONECROSIS [None]
  - PULMONARY HYPERTENSION [None]
